FAERS Safety Report 18559188 (Version 1)
Quarter: 2020Q4

REPORT INFORMATION
  Report Type: Spontaneous
  Country: US (occurrence: US)
  Receive Date: 20201125
  Receipt Date: 20201125
  Transmission Date: 20210114
  Serious: Yes (Hospitalization)
  Sender: FDA-Public Use
  Company Number: None

PATIENT
  Age: 57 Year
  Sex: Female
  Weight: 72 kg

DRUGS (15)
  1. DURAGESIC-50 TRANSDERMAL [Concomitant]
  2. POLYETHYLENE GLYCOL 3350 ORAL POWDER [Concomitant]
  3. AMITRIPTYLINE 50MG TABLET [Concomitant]
  4. HYDROMORPHONE 2 MG TABLET RX#2508431 [Concomitant]
     Active Substance: HYDROMORPHONE HYDROCHLORIDE
  5. LACTULOSE. [Concomitant]
     Active Substance: LACTULOSE
  6. BISACODYL 10MG PRN [Concomitant]
  7. NARCAN 4MG/0.1 ML NASAL SPRAY [Concomitant]
  8. PANTOPRAZOLE 40MG DELAYED RELEASE [Concomitant]
  9. SENNOSIDES-DOCUSATE SODIUM [Concomitant]
     Active Substance: DOCUSATE SODIUM\SENNOSIDES
  10. NIVOLUMAB 1MG/KG [Suspect]
     Active Substance: NIVOLUMAB
     Indication: PRODUCT USED FOR UNKNOWN INDICATION
     Dosage: ?          OTHER FREQUENCY:EVERY 21 DAYS;OTHER ROUTE:INFUSION?
     Dates: start: 20200424, end: 20201028
  11. GABAPENTIN 300MG CAPSULE [Concomitant]
     Active Substance: GABAPENTIN
  12. ONDANSETRON 4MG TABLET [Concomitant]
  13. BASAGLAR KWIKPEN [Concomitant]
     Active Substance: INSULIN GLARGINE
  14. IPILIMUMAB, 3MG/KG [Suspect]
     Active Substance: IPILIMUMAB
     Indication: IMMUNE SYSTEM DISORDER
     Dosage: ?          OTHER FREQUENCY:EVERY 21 DAYS;OTHER ROUTE:INFUSION?
     Dates: start: 20200605, end: 20201028
  15. METHOCARBAMOL 750 MG TABLETS SOLC [Concomitant]
     Active Substance: METHOCARBAMOL

REACTIONS (5)
  - Pleural effusion [None]
  - Metastases to lung [None]
  - Haemoglobin decreased [None]
  - Dyspnoea [None]
  - Acute respiratory failure [None]

NARRATIVE: CASE EVENT DATE: 20200915
